FAERS Safety Report 6266867-X (Version None)
Quarter: 2009Q3

REPORT INFORMATION
  Report Type: 
  Country: None (occurrence: None)
  Receive Date: 20090710
  Receipt Date: 20090710
  Transmission Date: 20100115
  Serious: Yes (Hospitalization)
  Sender: FDA-Public Use
  Company Number: None

PATIENT
  Age: 66 Year
  Sex: Male
  Weight: 96.5 kg

DRUGS (2)
  1. LISINOPRIL AND HYDROCHLOROTHIAZIDE [Suspect]
     Indication: HYPERTENSION
     Dosage: 1 TAB EVERY DAY PO
     Route: 048
     Dates: start: 20071220, end: 20090707
  2. VERAPAMIL [Suspect]
     Indication: HYPERTENSION
     Dosage: 240 MG BID PO
     Route: 048
     Dates: start: 20080822, end: 20090707

REACTIONS (1)
  - HYPOTENSION [None]
